FAERS Safety Report 16223882 (Version 1)
Quarter: 2019Q2

REPORT INFORMATION
  Report Type: Spontaneous
  Country: US (occurrence: US)
  Receive Date: 20190421
  Receipt Date: 20190421
  Transmission Date: 20190711
  Serious: Yes (Life-Threatening)
  Sender: FDA-Public Use
  Company Number: None

PATIENT
  Age: 30 Year
  Sex: Female
  Weight: 78.47 kg

DRUGS (1)
  1. NEXPLANON [Suspect]
     Active Substance: ETONOGESTREL
     Indication: CONTRACEPTION

REACTIONS (7)
  - Anxiety [None]
  - Sleep terror [None]
  - Depression [None]
  - Weight increased [None]
  - Libido decreased [None]
  - Hypertrichosis [None]
  - Suicidal ideation [None]

NARRATIVE: CASE EVENT DATE: 20180606
